FAERS Safety Report 5575909-6 (Version None)
Quarter: 2007Q4

REPORT INFORMATION
  Report Type: 
  Country: None (occurrence: None)
  Receive Date: 20071221
  Receipt Date: 20071207
  Transmission Date: 20080405
  Serious: Yes (Hospitalization)
  Sender: FDA-Public Use
  Company Number: 02100-JPN-07-0595

PATIENT
  Age: 58 Year
  Sex: Male

DRUGS (9)
  1. CILOSTAZOL [Suspect]
     Indication: LACUNAR INFARCTION
     Dosage: 200 MG/ 200 MG/100 MG/100 MG/ 200 MG
     Route: 048
     Dates: start: 20040722, end: 20050630
  2. CILOSTAZOL [Suspect]
     Indication: LACUNAR INFARCTION
     Dosage: 200 MG/ 200 MG/100 MG/100 MG/ 200 MG
     Route: 048
     Dates: start: 20050707, end: 20060706
  3. CILOSTAZOL [Suspect]
     Indication: LACUNAR INFARCTION
     Dosage: 200 MG/ 200 MG/100 MG/100 MG/ 200 MG
     Route: 048
     Dates: start: 20060707, end: 20060809
  4. CILOSTAZOL [Suspect]
     Indication: LACUNAR INFARCTION
     Dosage: 200 MG/ 200 MG/100 MG/100 MG/ 200 MG
     Route: 048
     Dates: start: 20060820, end: 20070131
  5. IFENPRODIL TARTRATE [Concomitant]
  6. TIQUIZIUM BROMIDE [Concomitant]
  7. TELMISARTAN [Concomitant]
  8. ATORVASTATIN CALCIUM [Concomitant]
  9. TICLOPIDINE HYDROCHLORIDE [Concomitant]

REACTIONS (8)
  - ATRIOVENTRICULAR BLOCK [None]
  - BLOOD PRESSURE DECREASED [None]
  - CONDITION AGGRAVATED [None]
  - DUODENAL ULCER HAEMORRHAGE [None]
  - HYPERTENSION [None]
  - NASOPHARYNGITIS [None]
  - TOOTH EXTRACTION [None]
  - UPPER RESPIRATORY TRACT INFLAMMATION [None]
